FAERS Safety Report 12263836 (Version 1)
Quarter: 2016Q2

REPORT INFORMATION
  Report Type: Spontaneous
  Country: US (occurrence: US)
  Receive Date: 20160413
  Receipt Date: 20160413
  Transmission Date: 20160815
  Serious: No
  Sender: FDA-Public Use
  Company Number: US-JNJFOC-20160327948

PATIENT
  Age: 12 Month
  Sex: Male
  Weight: 8.62 kg

DRUGS (1)
  1. ACETAMINOPHEN INFANTS [Suspect]
     Active Substance: ACETAMINOPHEN
     Indication: TEETHING
     Dosage: NIGHTLY FOR ABOUT A MONTH
     Route: 048

REACTIONS (1)
  - Drug administration error [Unknown]
